FAERS Safety Report 13531986 (Version 2)
Quarter: 2017Q2

REPORT INFORMATION
  Report Type: Spontaneous
  Country: JP (occurrence: JP)
  Receive Date: 20170510
  Receipt Date: 20170623
  Transmission Date: 20170830
  Serious: Yes (Life-Threatening, Hospitalization, Other)
  Sender: FDA-Public Use
  Company Number: JP-GLAXOSMITHKLINE-JP2017JPN051724

PATIENT
  Age: 40 Year
  Sex: Female
  Weight: 75 kg

DRUGS (6)
  1. SELENICA [Suspect]
     Active Substance: SELENIUM
     Indication: PSYCHIATRIC SYMPTOM
     Dosage: 100 MG, BID
     Route: 048
  2. CIMZIA [Concomitant]
     Active Substance: CERTOLIZUMAB PEGOL
     Indication: RHEUMATOID ARTHRITIS
     Dosage: UNK
  3. PREDONINE [Concomitant]
     Active Substance: PREDNISOLONE
     Indication: RHEUMATOID ARTHRITIS
  4. SELENICA [Suspect]
     Active Substance: SELENIUM
     Dosage: 80 MG, 1D
     Route: 048
  5. LAMICTAL [Suspect]
     Active Substance: LAMOTRIGINE
     Indication: DEPRESSION
     Dosage: 25 MG, QOD
     Route: 048
     Dates: start: 20170307, end: 20170320
  6. LAMICTAL [Suspect]
     Active Substance: LAMOTRIGINE
     Dosage: 25 MG, 1D
     Route: 048
     Dates: start: 20170321, end: 20170328

REACTIONS (13)
  - Purpura [Unknown]
  - Feeding disorder [Unknown]
  - Stevens-Johnson syndrome [Recovered/Resolved]
  - Erythema of eyelid [Unknown]
  - Scab [Unknown]
  - Erythema [Unknown]
  - Oral mucosa erosion [Recovering/Resolving]
  - Pyrexia [Unknown]
  - Lip erosion [Recovering/Resolving]
  - Lymphadenopathy [Unknown]
  - Rash [Recovered/Resolved]
  - Ocular hyperaemia [Unknown]
  - Rash maculo-papular [Unknown]

NARRATIVE: CASE EVENT DATE: 20170328
